FAERS Safety Report 4465611-6 (Version None)
Quarter: 2004Q3

REPORT INFORMATION
  Report Type: 
  Country: None (occurrence: None)
  Receive Date: 20040929
  Receipt Date: 20040915
  Transmission Date: 20050211
  Serious: Yes (Other)
  Sender: FDA-Public Use
  Company Number: USA040978341

PATIENT
  Age: 6 Year
  Sex: Male

DRUGS (1)
  1. STRATTERA [Suspect]

REACTIONS (1)
  - HOMICIDAL IDEATION [None]
